FAERS Safety Report 5983616-0 (Version None)
Quarter: 2008Q4

REPORT INFORMATION
  Report Type: 
  Country: None (occurrence: None)
  Receive Date: 20081208
  Receipt Date: 20081124
  Transmission Date: 20090506
  Serious: Yes (Death, Other)
  Sender: FDA-Public Use
  Company Number: TW-PFIZER INC-2008101280

PATIENT

DRUGS (3)
  1. METHYLPREDNISOLONE AND METHYLPREDNISOLONE ACETATE AND METHYLPREDNISOLO [Suspect]
     Indication: HEART TRANSPLANT REJECTION
     Dosage: BOLUS
     Route: 042
  2. TACROLIMUS [Concomitant]
     Indication: HEART TRANSPLANT REJECTION
     Route: 048
  3. MYCOPHENOLATE MOFETIL [Concomitant]
     Indication: HEART TRANSPLANT REJECTION
     Route: 048

REACTIONS (2)
  - CARDIAC ARREST [None]
  - CEREBRAL ISCHAEMIA [None]
